FAERS Safety Report 6975691-1 (Version None)
Quarter: 2010Q3

REPORT INFORMATION
  Report Type: 
  Country: None (occurrence: None)
  Receive Date: 20100910
  Receipt Date: 20100830
  Transmission Date: 20110219
  Serious: Yes (Disabling)
  Sender: FDA-Public Use
  Company Number: CA-ENDO PHARMACEUTICALS INC.-PERC20100118

PATIENT
  Sex: Female

DRUGS (1)
  1. PERCOCET [Suspect]
     Indication: PRODUCT USED FOR UNKNOWN INDICATION
     Dosage: UNK
     Route: 048

REACTIONS (3)
  - BALANCE DISORDER [None]
  - HEADACHE [None]
  - NAUSEA [None]
